FAERS Safety Report 7303642 (Version 6)
Quarter: 2012Q4

REPORT INFORMATION
  Report Type: Report from Study
  Country: JP (occurrence: JP)
  Receive Date: 20100303
  Receipt Date: 20120907
  Transmission Date: 20130627
  Serious: Yes (Life-Threatening, Hospitalization, Other)
  Sender: FDA-Public Use
  Company Number: JP-ROCHE-652275

PATIENT
  Age: 58 None
  Sex: Female
  Weight: 56 kg

DRUGS (14)
  1. ROACTEMRA [Suspect]
     Indication: RHEUMATOID ARTHRITIS
     Route: 041
     Dates: start: 20090721, end: 20090721
  2. ROACTEMRA [Suspect]
     Route: 041
     Dates: start: 20091120, end: 20110207
  3. ROACTEMRA [Suspect]
     Route: 041
     Dates: start: 20110415, end: 20110415
  4. ROACTEMRA [Suspect]
     Route: 041
     Dates: start: 20110601, end: 20110601
  5. METHOTREXATE [Suspect]
     Indication: RHEUMATOID ARTHRITIS
     Dosage: FORM: PERORAL AGENT
     Route: 048
     Dates: start: 2007, end: 20080314
  6. METHOTREXATE [Suspect]
     Dosage: FORM: PERORAL AGENT
     Route: 048
     Dates: start: 20080314, end: 20080515
  7. METHOTREXATE [Suspect]
     Dosage: FORM: PERORAL AGENT
     Route: 048
  8. PREDNISOLONE [Suspect]
     Indication: RHEUMATOID ARTHRITIS
     Route: 048
  9. LOXONIN [Concomitant]
     Route: 048
  10. MUCOSTA [Concomitant]
     Route: 048
  11. OMEPRAL [Concomitant]
     Dosage: FORM: ENTERIC COATING DRUG
     Route: 048
  12. BENET [Concomitant]
     Route: 048
  13. SULBACTAM [Concomitant]
     Route: 065
     Dates: start: 20110219, end: 201102
  14. AMPICILLIN [Concomitant]
     Route: 065
     Dates: start: 20110219, end: 201102

REACTIONS (4)
  - Interstitial lung disease [Recovered/Resolved]
  - Pneumocystis jiroveci pneumonia [Recovered/Resolved]
  - Diarrhoea [Unknown]
  - Pneumonia pneumococcal [Recovered/Resolved]
